FAERS Safety Report 14571125 (Version 1)
Quarter: 2018Q1

REPORT INFORMATION
  Report Type: Spontaneous
  Country: US (occurrence: US)
  Receive Date: 20180223
  Receipt Date: 20180223
  Transmission Date: 20180509
  Serious: Yes (Hospitalization)
  Sender: FDA-Public Use
  Company Number: None

PATIENT
  Age: 77 Year
  Sex: Male
  Weight: 96.66 kg

DRUGS (2)
  1. ASPIRIN. [Suspect]
     Active Substance: ASPIRIN
     Indication: CORONARY ARTERY DISEASE
     Route: 048
     Dates: start: 20130201
  2. RIVAROXABAN [Suspect]
     Active Substance: RIVAROXABAN
     Indication: ARTERIAL OCCLUSIVE DISEASE
     Dosage: FREQUENCY - PM
     Route: 048
     Dates: start: 20171101, end: 20171211

REACTIONS (6)
  - Anaemia [None]
  - Dyspnoea [None]
  - Asthenia [None]
  - Gastric haemorrhage [None]
  - Haemorrhage [None]
  - Melaena [None]

NARRATIVE: CASE EVENT DATE: 20171211
